FAERS Safety Report 20136059 (Version 1)
Quarter: 2021Q4

REPORT INFORMATION
  Report Type: Spontaneous
  Country: US (occurrence: None)
  Receive Date: 20211130
  Receipt Date: 20211130
  Transmission Date: 20220303
  Serious: No
  Sender: FDA-Public Use
  Company Number: None

PATIENT
  Age: 58 Year
  Sex: Male

DRUGS (2)
  1. KEPPRA [Suspect]
     Active Substance: LEVETIRACETAM
     Route: 042
  2. KEPPRA [Suspect]
     Active Substance: LEVETIRACETAM
     Route: 048

REACTIONS (3)
  - Incorrect route of product administration [None]
  - Incorrect dose administered [None]
  - Wrong dosage form [None]
